FAERS Safety Report 7959098-6 (Version None)
Quarter: 2011Q4

REPORT INFORMATION
  Report Type: 
  Country: None (occurrence: None)
  Receive Date: 20111206
  Receipt Date: 20111206
  Transmission Date: 20120403
  Serious: Yes (Death)
  Sender: FDA-Public Use
  Company Number: None

PATIENT
  Age: 70 Year
  Sex: Female

DRUGS (10)
  1. METHOTREXATE [Concomitant]
     Indication: RHEUMATOID ARTHRITIS
     Dosage: UNKNOWN
  2. GABAPENTIN [Concomitant]
  3. FOLIC ACID [Concomitant]
  4. PREDNISONE TAB [Concomitant]
  5. INFLIXIMAB [Suspect]
     Indication: RHEUMATOID ARTHRITIS
     Dosage: UNKNOWN
     Route: 042
  6. VICODIN [Concomitant]
  7. LISINOPRIL [Concomitant]
  8. ZOCOR [Concomitant]
  9. COMBIVENT [Concomitant]
  10. ACTONEL [Concomitant]

REACTIONS (7)
  - MENINGITIS LISTERIA [None]
  - UNRESPONSIVE TO STIMULI [None]
  - ASTHENIA [None]
  - PYREXIA [None]
  - HEADACHE [None]
  - NAUSEA [None]
  - VOMITING [None]
